FAERS Safety Report 9163314 (Version 1)
Quarter: 2013Q1

REPORT INFORMATION
  Report Type: Spontaneous
  Country: US (occurrence: None)
  Receive Date: 20130221
  Receipt Date: 20130221
  Transmission Date: 20140127
  Serious: No
  Sender: FDA-Public Use
  Company Number: TCI2012A07548

PATIENT
  Sex: 0

DRUGS (1)
  1. LIOVEL COMBINATION TABLETS (ALOGLIPTIN BENZOATE, PIOGLITAZONE HYDROCHLORIDE) [Suspect]
     Route: 048

REACTIONS (1)
  - Blindness transient [None]
